FAERS Safety Report 7548862-3 (Version None)
Quarter: 2011Q2

REPORT INFORMATION
  Report Type: 
  Country: None (occurrence: None)
  Receive Date: 20110615
  Receipt Date: 20091108
  Transmission Date: 20111010
  Serious: Yes (Other)
  Sender: FDA-Public Use
  Company Number: US-BAYER-200938882NA

PATIENT
  Age: 53 Year
  Sex: Female
  Weight: 96.145 kg

DRUGS (20)
  1. LASIX [Concomitant]
     Indication: FLUID RETENTION
     Dosage: 80 MG, UNK
     Route: 048
     Dates: start: 19970101, end: 20050101
  2. ACETYLSALICYLIC ACID SRT [Concomitant]
     Route: 048
  3. VERAPAMIL [Concomitant]
     Dosage: 20 MG, UNK
  4. HEPARIN [Concomitant]
     Dosage: UNK
     Route: 042
     Dates: start: 20050725, end: 20050725
  5. BUMEX [Concomitant]
     Dosage: 2 MG, UNK
     Route: 042
     Dates: start: 20050725, end: 20050725
  6. PROTAMINE SULFATE [Concomitant]
     Dosage: 250 MG, UNK
     Route: 042
     Dates: start: 20050725, end: 20050725
  7. RED BLOOD CELLS [Concomitant]
     Dosage: 3 U, UNK
     Route: 042
     Dates: start: 20050725, end: 20050725
  8. CARDIOPLEGIA [Concomitant]
     Dosage: 1 BAG
     Dates: start: 20050725, end: 20050725
  9. MANNITOL [Concomitant]
     Dosage: 50 ML, UNK
     Route: 042
     Dates: start: 20050725, end: 20050725
  10. TRASYLOL [Suspect]
     Indication: CORONARY ARTERY BYPASS
     Dosage: 200 MG, UNK
     Route: 042
     Dates: start: 20050725, end: 20050725
  11. LANTUS [Concomitant]
     Dosage: SLIDING SCALE
     Route: 058
  12. PROCARDIA XL [Concomitant]
     Dosage: 90 MG, UNK
     Route: 048
  13. ENALAPRIL MALEATE [Concomitant]
     Dosage: 20 MG, UNK
     Route: 048
     Dates: start: 19910101
  14. NEOSYNEPHRINE [Concomitant]
     Dosage: 200 MG, UNK
     Route: 042
     Dates: start: 20050725, end: 20050725
  15. EPINEPHRINE [Concomitant]
     Dosage: UNK
     Route: 042
     Dates: start: 20050725, end: 20050725
  16. MAGNESIUM SULFATE [Concomitant]
     Dosage: UNK
     Route: 042
     Dates: start: 20050725, end: 20050725
  17. POTASSIUM CHLORIDE [Concomitant]
     Dosage: 10 MEQ
     Route: 048
  18. ANCEF [Concomitant]
     Dosage: 1.5 G, UNK
     Route: 042
     Dates: start: 20050725, end: 20050725
  19. VANCOMYCIN [Concomitant]
     Dosage: 1 G, UNK
     Route: 042
     Dates: start: 20050725, end: 20050727
  20. IPRATROPIUM BROMIDE [Concomitant]
     Dosage: 0.02%
     Route: 042
     Dates: start: 20050725, end: 20050725

REACTIONS (18)
  - ANXIETY [None]
  - ATELECTASIS [None]
  - STRESS [None]
  - EMOTIONAL DISTRESS [None]
  - UNEVALUABLE EVENT [None]
  - DEEP VEIN THROMBOSIS [None]
  - DEVICE RELATED INFECTION [None]
  - RENAL INJURY [None]
  - PAIN [None]
  - HAEMODIALYSIS [None]
  - SINUS BRADYCARDIA [None]
  - STAPHYLOCOCCUS TEST POSITIVE [None]
  - RENAL IMPAIRMENT [None]
  - RENAL FAILURE [None]
  - FEAR [None]
  - DEPRESSION [None]
  - HAEMODYNAMIC INSTABILITY [None]
  - HEPARIN-INDUCED THROMBOCYTOPENIA [None]
